FAERS Safety Report 15853738 (Version 4)
Quarter: 2019Q2

REPORT INFORMATION
  Report Type: Spontaneous
  Country: JP (occurrence: JP)
  Receive Date: 20190122
  Receipt Date: 20190412
  Transmission Date: 20190711
  Serious: Yes (Life-Threatening, Hospitalization, Other)
  Sender: FDA-Public Use
  Company Number: JP-GLAXOSMITHKLINE-JP2019JPN007680

PATIENT
  Age: 87 Year
  Sex: Female
  Weight: 38 kg

DRUGS (6)
  1. MADOPAR [Concomitant]
     Active Substance: BENSERAZIDE HYDROCHLORIDE\LEVODOPA
     Indication: PARKINSON^S DISEASE
     Dosage: 1.5 DF, TID
     Dates: end: 20190116
  2. AMITIZA CAPSULE [Concomitant]
     Indication: CONSTIPATION
     Dosage: 1 DF, BID
     Dates: end: 20190116
  3. RISPERDAL TABLETS [Concomitant]
     Indication: DELIRIUM
     Dosage: 0.5 MG, QD
     Dates: end: 20190116
  4. ZOLPIDEM TARTRATE. [Concomitant]
     Active Substance: ZOLPIDEM TARTRATE
     Indication: INSOMNIA
     Dosage: 5 MG, QD
     Dates: end: 20190115
  5. REQUIP [Suspect]
     Active Substance: ROPINIROLE HYDROCHLORIDE
     Indication: PARKINSON^S DISEASE
     Dosage: 2 MG, QD
     Route: 048
     Dates: end: 20190116
  6. AMLODIPINE BESILATE TABLET [Concomitant]
     Active Substance: AMLODIPINE BESYLATE
     Indication: HYPERTENSION
     Dosage: 25 MG, QD
     Dates: end: 20190116

REACTIONS (10)
  - Choking [Not Recovered/Not Resolved]
  - Disseminated intravascular coagulation [Recovered/Resolved]
  - Staphylococcal infection [Not Recovered/Not Resolved]
  - Cholecystitis acute [Recovered/Resolved]
  - Hyporeflexia [Recovered/Resolved]
  - Parkinson^s disease [Unknown]
  - Foreign body in respiratory tract [Unknown]
  - Pyrexia [Recovered/Resolved]
  - Dysphagia [Unknown]
  - Aspiration [Not Recovered/Not Resolved]

NARRATIVE: CASE EVENT DATE: 20190104
